FAERS Safety Report 7287163-8 (Version None)
Quarter: 2010Q4

REPORT INFORMATION
  Report Type: 
  Country: None (occurrence: None)
  Receive Date: 20101220
  Receipt Date: 20100329
  Transmission Date: 20110411
  Serious: Yes (Other)
  Sender: FDA-Public Use
  Company Number: A-US2010-35258

PATIENT
  Age: 57 Year
  Sex: Male
  Weight: 241 kg

DRUGS (1)
  1. ZAVESCA [Suspect]
     Indication: GAUCHER'S DISEASE
     Dosage: 100 UG, ORAL
     Route: 048
     Dates: start: 20080101

REACTIONS (4)
  - ABDOMINAL DISTENSION [None]
  - AMNESIA [None]
  - PAIN [None]
  - PLATELET COUNT DECREASED [None]
